FAERS Safety Report 6482703-0 (Version None)
Quarter: 2009Q4

REPORT INFORMATION
  Report Type: 
  Country: None (occurrence: None)
  Receive Date: 20091209
  Receipt Date: 20091203
  Transmission Date: 20100525
  Serious: Yes (Hospitalization, Other)
  Sender: FDA-Public Use
  Company Number: US-ELI_LILLY_AND_COMPANY-US200912001187

PATIENT
  Age: 65 Year
  Sex: Female

DRUGS (3)
  1. HUMULIN R [Suspect]
     Indication: TYPE 2 DIABETES MELLITUS
     Dosage: 25 U, EACH MORNING
  2. HUMULIN R [Suspect]
     Dosage: 20 U, EACH EVENING
  3. HUMULIN R [Suspect]
     Dosage: 50 U, UNK
     Dates: start: 20091126, end: 20091126

REACTIONS (8)
  - BRAIN INJURY [None]
  - FALL [None]
  - HYPOGLYCAEMIA [None]
  - HYPOGLYCAEMIC UNCONSCIOUSNESS [None]
  - INCORRECT DOSE ADMINISTERED [None]
  - JOINT INJURY [None]
  - OBESITY SURGERY [None]
  - WEIGHT DECREASED [None]
